FAERS Safety Report 17246889 (Version 2)
Quarter: 2020Q2

REPORT INFORMATION
  Report Type: Spontaneous
  Country: US (occurrence: US)
  Receive Date: 20200108
  Receipt Date: 20200527
  Transmission Date: 20200713
  Serious: No
  Sender: FDA-Public Use
  Company Number: US-PFIZER INC-2019405085

PATIENT
  Age: 78 Year
  Sex: Female

DRUGS (1)
  1. XELJANZ XR [Suspect]
     Active Substance: TOFACITINIB CITRATE
     Dosage: 11 MG, UNK

REACTIONS (6)
  - Dysphonia [Unknown]
  - Blood cholesterol abnormal [Unknown]
  - Hypertonic bladder [Unknown]
  - Influenza [Unknown]
  - Bronchitis [Unknown]
  - Arthritis [Unknown]

NARRATIVE: CASE EVENT DATE: 201912
